FAERS Safety Report 16463983 (Version 1)
Quarter: 2019Q3

REPORT INFORMATION
  Report Type: Spontaneous
  Country: US (occurrence: US)
  Receive Date: 20190620
  Receipt Date: 20190620
  Transmission Date: 20191004
  Serious: Yes (Hospitalization)
  Sender: FDA-Public Use
  Company Number: None

PATIENT
  Age: 44 Year
  Sex: Male

DRUGS (12)
  1. EPIPEN [Concomitant]
     Active Substance: EPINEPHRINE
  2. CELEXOXIB [Concomitant]
  3. PRILOSEC [Concomitant]
     Active Substance: OMEPRAZOLE MAGNESIUM
  4. FLONASE [Concomitant]
     Active Substance: FLUTICASONE PROPIONATE
  5. SINGULAIR [Concomitant]
     Active Substance: MONTELUKAST SODIUM
  6. VERAPAMIL [Concomitant]
     Active Substance: VERAPAMIL HYDROCHLORIDE
  7. CYCLOBENZAPR [Concomitant]
     Active Substance: CYCLOBENZAPRINE
  8. VITAMIN D [Concomitant]
     Active Substance: VITAMIN D NOS
  9. ALBUTEROL. [Concomitant]
     Active Substance: ALBUTEROL
  10. MODAFINIL. [Concomitant]
     Active Substance: MODAFINIL
  11. TESTOPEL [Suspect]
     Active Substance: TESTOSTERONE
     Indication: TESTICULAR FAILURE
     Dosage: ?          OTHER FREQUENCY:AS DIRECTED;?
     Route: 058
     Dates: start: 20161117
  12. DIOVAN [Concomitant]
     Active Substance: VALSARTAN

REACTIONS (2)
  - Spinal fusion surgery [None]
  - Therapy cessation [None]

NARRATIVE: CASE EVENT DATE: 20190422
